FAERS Safety Report 4791234-5 (Version None)
Quarter: 2005Q4

REPORT INFORMATION
  Report Type: 
  Country: None (occurrence: None)
  Receive Date: 20051007
  Receipt Date: 20050422
  Transmission Date: 20060501
  Serious: Yes (Hospitalization)
  Sender: FDA-Public Use
  Company Number: US-BOEHRINGER INGELHEIM PHARMACEUTICALS, INC.-2005-BP-06677BP

PATIENT
  Age: 83 Year
  Sex: Male

DRUGS (14)
  1. FLOMAX [Suspect]
     Indication: URINARY RETENTION
     Route: 048
     Dates: start: 20011201
  2. FLOMAX [Suspect]
     Indication: FLUID RETENTION
  3. WARFARIN [Concomitant]
     Indication: ATRIAL FIBRILLATION
  4. SENNA [Concomitant]
  5. VITS/SUPPPL [Concomitant]
  6. FISH OIL [Concomitant]
  7. LECITHIN [Concomitant]
  8. VIT E [Concomitant]
  9. CO Q10 [Concomitant]
  10. CALCIUM GLUCONATE [Concomitant]
  11. MAG [Concomitant]
  12. DIG ENZYMES [Concomitant]
  13. VITAMIN B COMPLEX CAP [Concomitant]
  14. ASCORBIC ACID [Concomitant]

REACTIONS (5)
  - DIZZINESS [None]
  - GRAVITATIONAL OEDEMA [None]
  - URINARY RETENTION [None]
  - URINARY TRACT INFECTION [None]
  - URINE FLOW DECREASED [None]
